FAERS Safety Report 20052955 (Version 1)
Quarter: 2021Q4

REPORT INFORMATION
  Report Type: Spontaneous
  Country: IT (occurrence: IT)
  Receive Date: 20211110
  Receipt Date: 20211110
  Transmission Date: 20220303
  Serious: Yes (Other)
  Sender: FDA-Public Use
  Company Number: IT-MLMSERVICE-20211026-3182415-4

PATIENT

DRUGS (7)
  1. MYCOPHENOLIC ACID [Suspect]
     Active Substance: MYCOPHENOLIC ACID
     Route: 064
     Dates: start: 2012
  2. TACROLIMUS [Suspect]
     Active Substance: TACROLIMUS
     Route: 064
  3. PREDNISONE [Suspect]
     Active Substance: PREDNISONE
     Route: 064
     Dates: start: 2016
  4. IRON [Concomitant]
     Active Substance: IRON
     Route: 064
     Dates: start: 2016
  5. NIFEDIPINE [Concomitant]
     Active Substance: NIFEDIPINE
     Route: 064
  6. ASPIRIN [Concomitant]
     Active Substance: ASPIRIN
     Route: 064
     Dates: start: 2016
  7. METHYLDOPA [Concomitant]
     Active Substance: METHYLDOPA
     Route: 064

REACTIONS (3)
  - Low birth weight baby [Recovered/Resolved]
  - Foetal exposure during pregnancy [Unknown]
  - Premature baby [Unknown]

NARRATIVE: CASE EVENT DATE: 20180101
